FAERS Safety Report 18725525 (Version 1)
Quarter: 2021Q1

REPORT INFORMATION
  Report Type: Spontaneous
  Country: US (occurrence: US)
  Receive Date: 20210111
  Receipt Date: 20210111
  Transmission Date: 20210419
  Serious: Yes (Hospitalization)
  Sender: FDA-Public Use
  Company Number: US-AMNEAL PHARMACEUTICALS-2020-AMRX-04172

PATIENT
  Age: 19 Year
  Sex: Male

DRUGS (1)
  1. METFORMIN HYDROCHLORIDE ER [Suspect]
     Active Substance: METFORMIN HYDROCHLORIDE
     Indication: PRODUCT USED FOR UNKNOWN INDICATION
     Dosage: 360 TABLETS, SINGLE
     Route: 065

REACTIONS (6)
  - Lactic acidosis [Recovered/Resolved]
  - Acute respiratory failure [Recovered/Resolved]
  - Anion gap increased [Recovered/Resolved]
  - Intentional overdose [Unknown]
  - Acute kidney injury [Recovered/Resolved]
  - Suicide attempt [Unknown]
